FAERS Safety Report 16181701 (Version 1)
Quarter: 2019Q2

REPORT INFORMATION
  Report Type: Spontaneous
  Country: US (occurrence: US)
  Receive Date: 20190410
  Receipt Date: 20190410
  Transmission Date: 20190711
  Serious: No
  Sender: FDA-Public Use
  Company Number: US-JNJFOC-20190340675

PATIENT
  Age: 60 Year
  Sex: Male

DRUGS (1)
  1. NIZORAL A-D [Suspect]
     Active Substance: KETOCONAZOLE
     Indication: DANDRUFF
     Dosage: COUPLE DROPS ONCE A WEEK
     Route: 061
     Dates: end: 20190209

REACTIONS (2)
  - Application site pruritus [Not Recovered/Not Resolved]
  - Application site erythema [Not Recovered/Not Resolved]
